FAERS Safety Report 8817062 (Version 1)
Quarter: 2012Q4

REPORT INFORMATION
  Report Type: Spontaneous
  Country: US (occurrence: None)
  Receive Date: 20121003
  Receipt Date: 20121003
  Transmission Date: 20130627
  Serious: Yes (Other)
  Sender: FDA-Public Use
  Company Number: None

PATIENT
  Age: 47 Year
  Sex: Female

DRUGS (1)
  1. COPAXONE TEVA [Suspect]
     Indication: MS
     Dosage: 20mg QD SQ
     Route: 058
     Dates: start: 20100401

REACTIONS (7)
  - Erythema [None]
  - Flushing [None]
  - Chills [None]
  - Palpitations [None]
  - Speech disorder [None]
  - Tongue disorder [None]
  - Product quality issue [None]
